FAERS Safety Report 10382954 (Version 2)
Quarter: 2020Q4

REPORT INFORMATION
  Report Type: Report from Study
  Country: US (occurrence: US)
  Receive Date: 20140813
  Receipt Date: 20201103
  Transmission Date: 20210113
  Serious: No
  Sender: FDA-Public Use
  Company Number: US-SA-2014SA062253

PATIENT
  Age: 48 Year
  Sex: Female

DRUGS (6)
  1. AGALSIDASE BETA [Suspect]
     Active Substance: AGALSIDASE BETA
     Dosage: 45 MG,QOW
     Route: 041
     Dates: start: 201402, end: 20140428
  2. BENADRYL [Concomitant]
     Active Substance: DIPHENHYDRAMINE HYDROCHLORIDE
     Indication: PREMEDICATION
     Dosage: UNK
     Route: 065
  3. AGALSIDASE BETA [Suspect]
     Active Substance: AGALSIDASE BETA
     Indication: FABRY^S DISEASE
     Dosage: 35 MG,QOW
     Route: 041
     Dates: start: 20110712
  4. AGALSIDASE BETA [Suspect]
     Active Substance: AGALSIDASE BETA
     Dosage: 35 MG,QOW
     Route: 041
  5. AGALSIDASE BETA [Suspect]
     Active Substance: AGALSIDASE BETA
     Dosage: 40 MG,QOW
     Route: 041
  6. AGALSIDASE BETA [Suspect]
     Active Substance: AGALSIDASE BETA
     Dosage: 40 MG,QOW
     Route: 041
     Dates: start: 20140504

REACTIONS (11)
  - Pain [Unknown]
  - Blood pressure decreased [Unknown]
  - Gastroenteritis [Unknown]
  - Restlessness [Recovered/Resolved]
  - Influenza [Recovering/Resolving]
  - Fatigue [Unknown]
  - Skin laceration [Recovered/Resolved]
  - Wound haemorrhage [Recovered/Resolved]
  - Malaise [Not Recovered/Not Resolved]
  - Nausea [Recovered/Resolved]
  - Palpitations [Recovered/Resolved]

NARRATIVE: CASE EVENT DATE: 20140428
